FAERS Safety Report 7015036-4 (Version None)
Quarter: 2010Q3

REPORT INFORMATION
  Report Type: 
  Country: None (occurrence: None)
  Receive Date: 20100927
  Receipt Date: 20100916
  Transmission Date: 20110219
  Serious: Yes (Other)
  Sender: FDA-Public Use
  Company Number: US-JNJCH-2010021396

PATIENT
  Sex: Male
  Weight: 88.5 kg

DRUGS (2)
  1. LISTERINE TOTAL CARE ANTICAVITY MOUTHWASH [Suspect]
     Indication: DENTAL DISORDER PROPHYLAXIS
     Dosage: TEXT:SMALL CAPFUL ONCE PER DAY - COMBINED
     Route: 048
     Dates: start: 20100815, end: 20100915
  2. LISTERINE TOTAL CARE ANTICAVITY MOUTHWASH CINNAMINT [Suspect]
     Indication: DENTAL DISORDER PROPHYLAXIS
     Dosage: TEXT:SMALL CAPFUL ONCE PER DAY
     Route: 048
     Dates: start: 20100815, end: 20100915

REACTIONS (3)
  - APPLICATION SITE PAIN [None]
  - SURGERY [None]
  - TONGUE DISCOLOURATION [None]
